FAERS Safety Report 6647651-1 (Version None)
Quarter: 2010Q1

REPORT INFORMATION
  Report Type: 
  Country: None (occurrence: None)
  Receive Date: 20100323
  Receipt Date: 20100323
  Transmission Date: 20100710
  Serious: Yes (Other)
  Sender: FDA-Public Use
  Company Number: None

PATIENT
  Sex: Female

DRUGS (2)
  1. ATIVAN [Suspect]
     Indication: ANXIETY
     Dosage: 1 MG. P.M.
     Dates: start: 20080101, end: 20090101
  2. ATIVAN [Suspect]
     Indication: INSOMNIA
     Dosage: 1 MG. P.M.
     Dates: start: 20080101, end: 20090101

REACTIONS (1)
  - SUICIDAL IDEATION [None]
